FAERS Safety Report 7943942-2 (Version None)
Quarter: 2011Q4

REPORT INFORMATION
  Report Type: 
  Country: None (occurrence: None)
  Receive Date: 20111128
  Receipt Date: 20111118
  Transmission Date: 20120403
  Serious: Yes (Other)
  Sender: FDA-Public Use
  Company Number: CN-ASTRAZENECA-2011SE70322

PATIENT
  Sex: Female

DRUGS (5)
  1. PROPOFOL [Suspect]
     Dosage: 4-8 MG/KG/H
     Route: 042
  2. PROPOFOL [Suspect]
     Dosage: 2 MG/KG
     Route: 042
  3. KETAMINE HCL [Suspect]
  4. PHENOBARBITAL TAB [Suspect]
     Dosage: 0.1 G
     Route: 030
  5. ATROPINE [Suspect]
     Dosage: 0.5 MG

REACTIONS (3)
  - BLOOD PRESSURE INCREASED [None]
  - OXYGEN SATURATION DECREASED [None]
  - HEART RATE INCREASED [None]
